FAERS Safety Report 9149393 (Version 1)
Quarter: 2013Q1

REPORT INFORMATION
  Report Type: Spontaneous
  Country: US (occurrence: None)
  Receive Date: 20130301
  Receipt Date: 20130301
  Transmission Date: 20140127
  Serious: Yes (Other)
  Sender: FDA-Public Use
  Company Number: None

PATIENT
  Age: 53 Year
  Sex: Female
  Weight: 103.87 kg

DRUGS (1)
  1. GENERIC ZESTORETIC 20/12.5 MG [Suspect]
     Indication: HYPERTENSION
     Dosage: PO  DAILY
     Route: 048
     Dates: start: 201203

REACTIONS (2)
  - Rash [None]
  - Product substitution issue [None]
